FAERS Safety Report 5019267-4 (Version None)
Quarter: 2006Q2

REPORT INFORMATION
  Report Type: 
  Country: None (occurrence: None)
  Receive Date: 20060531
  Receipt Date: 20060523
  Transmission Date: 20061013
  Serious: Yes (Other)
  Sender: FDA-Public Use
  Company Number: FR-2004-027638

PATIENT
  Age: 32 Year
  Sex: Female

DRUGS (1)
  1. JASMINE (ETHINYLESTRADIOL, DROSPIRENONE) FILM TABLET [Suspect]
     Dosage: 1 TAB(S), 21D/28D, ORAL
     Route: 048
     Dates: end: 20040501

REACTIONS (4)
  - GAMMA-GLUTAMYLTRANSFERASE INCREASED [None]
  - HYPERCHOLESTEROLAEMIA [None]
  - HYPERTRIGLYCERIDAEMIA [None]
  - RENAL FAILURE [None]
